FAERS Safety Report 6460737-X (Version None)
Quarter: 2009Q4

REPORT INFORMATION
  Report Type: 
  Country: None (occurrence: None)
  Receive Date: 20091130
  Receipt Date: 20091110
  Transmission Date: 20100525
  Serious: Yes (Death)
  Sender: FDA-Public Use
  Company Number: GB-CELGENEUS-167-50794-09112114

PATIENT

DRUGS (4)
  1. VIDAZA [Suspect]
     Route: 050
  2. VIDAZA [Suspect]
  3. DAUNORUBICIN HCL [Concomitant]
     Route: 065
  4. ARA-C [Concomitant]
     Route: 065

REACTIONS (2)
  - DEATH [None]
  - LEUKAEMIA RECURRENT [None]
